FAERS Safety Report 20542893 (Version 1)
Quarter: 2022Q1

REPORT INFORMATION
  Report Type: Spontaneous
  Country: US (occurrence: US)
  Receive Date: 20220302
  Receipt Date: 20220302
  Transmission Date: 20220423
  Serious: No
  Sender: FDA-Public Use
  Company Number: US-PFIZER INC-2021616472

PATIENT
  Age: 81 Year
  Sex: Female
  Weight: 97.52 kg

DRUGS (2)
  1. METHYLPREDNISOLONE [Suspect]
     Active Substance: METHYLPREDNISOLONE
     Dosage: EVERY 4 OR 5 HOURS WAS A DECREASING FREQUENCY OF DOSE OVER 7 DAYS
     Route: 048
  2. VALACYCLOVIR HYDROCHLORIDE [Suspect]
     Active Substance: VALACYCLOVIR HYDROCHLORIDE
     Dosage: EVERY 6 OR 8 HOURS
     Dates: start: 20210505

REACTIONS (1)
  - Drug ineffective [Unknown]
